FAERS Safety Report 5018337-4 (Version None)
Quarter: 2006Q2

REPORT INFORMATION
  Report Type: 
  Country: None (occurrence: None)
  Receive Date: 20060530
  Receipt Date: 20050531
  Transmission Date: 20061013
  Serious: Yes (Disabling)
  Sender: FDA-Public Use
  Company Number: 2005081368

PATIENT
  Age: 53 Year
  Sex: Female

DRUGS (9)
  1. LYRICA [Suspect]
     Indication: BACK PAIN
     Dosage: 150 MG (75 MG, 2 IN 1 D), ORAL
     Route: 048
     Dates: start: 20050114, end: 20050123
  2. LYRICA [Suspect]
     Indication: PAIN IN EXTREMITY
     Dosage: 150 MG (75 MG, 2 IN 1 D), ORAL
     Route: 048
     Dates: start: 20050114, end: 20050123
  3. DIFORMIN (METFORMIN HYDROCHLORIDE) [Concomitant]
  4. DIUREX (AMILORIDE HYDROCHLORIDE, HYDROCHLOROTHIAZIDE) [Concomitant]
  5. EMGESAN (MAGNESIUM HYDROXIDE) [Concomitant]
  6. VOLTAREN [Concomitant]
  7. PANTOPRAZOLE SODIUM [Concomitant]
  8. DIAPAM  (DIAZEPAM) [Concomitant]
  9. TRAMADOL HCL [Concomitant]

REACTIONS (3)
  - ABNORMAL BEHAVIOUR [None]
  - CONFUSIONAL STATE [None]
  - RESTLESSNESS [None]
